FAERS Safety Report 16142032 (Version 14)
Quarter: 2020Q4

REPORT INFORMATION
  Report Type: Report from Study
  Country: None (occurrence: FR)
  Receive Date: 20190401
  Receipt Date: 20201118
  Transmission Date: 20210113
  Serious: Yes (Hospitalization, Other)
  Sender: FDA-Public Use
  Company Number: FR-ABBVIE-18K-056-2481804-00

PATIENT
  Age: 76 Year
  Sex: Female
  Weight: 66 kg

DRUGS (47)
  1. SODIUM ALGINATE [Concomitant]
     Active Substance: SODIUM ALGINATE
     Indication: PRODUCT USED FOR UNKNOWN INDICATION
  2. DIOSMECTITE [Concomitant]
     Active Substance: MONTMORILLONITE
     Indication: PRODUCT USED FOR UNKNOWN INDICATION
  3. CACIT [Concomitant]
     Indication: HYPOVITAMINOSIS
  4. VENCLYXTO [Suspect]
     Active Substance: VENETOCLAX
     Route: 048
     Dates: start: 20180612, end: 20180618
  5. VENCLYXTO [Suspect]
     Active Substance: VENETOCLAX
     Route: 048
     Dates: start: 20180703, end: 20180725
  6. VENCLYXTO [Suspect]
     Active Substance: VENETOCLAX
     Dosage: DAILY DOSE WAS MODIFIED
     Route: 048
     Dates: start: 201808, end: 201809
  7. VENCLYXTO [Suspect]
     Active Substance: VENETOCLAX
     Route: 048
     Dates: start: 20190703, end: 20190725
  8. ALPRAZOLAM. [Concomitant]
     Active Substance: ALPRAZOLAM
     Indication: ANXIETY
     Dates: start: 20180419
  9. AUGMENTIN [Concomitant]
     Active Substance: AMOXICILLIN\CLAVULANATE POTASSIUM
     Indication: PRODUCT USED FOR UNKNOWN INDICATION
  10. PERINDOPRIL [Concomitant]
     Active Substance: PERINDOPRIL
     Indication: HYPERTENSION
     Dates: start: 20200625
  11. SULFAMETHOXAZOLE [Concomitant]
     Active Substance: SULFAMETHOXAZOLE
     Indication: INFECTION
     Dates: start: 20180419
  12. BACTRIM [Concomitant]
     Active Substance: SULFAMETHOXAZOLE\TRIMETHOPRIM
     Indication: INFECTION PROPHYLAXIS
     Dates: start: 2018
  13. ZELITREX [Concomitant]
     Active Substance: VALACYCLOVIR HYDROCHLORIDE
     Indication: ALLERGY PROPHYLAXIS
     Dates: start: 20180829
  14. VENCLYXTO [Suspect]
     Active Substance: VENETOCLAX
     Route: 048
     Dates: start: 20180727, end: 20180802
  15. CALCIUM [Concomitant]
     Active Substance: CALCIUM
     Indication: CALCIUM DEFICIENCY
     Dates: start: 20180419
  16. ENOXAPARINE SODIQUE [Concomitant]
     Active Substance: ENOXAPARIN SODIUM
     Indication: ARRHYTHMIA
     Dates: start: 20180419
  17. KAYEXALATE [Concomitant]
     Active Substance: SODIUM POLYSTYRENE SULFONATE
     Indication: HYPERKALAEMIA
  18. VALACICLOVIR [Concomitant]
     Active Substance: VALACYCLOVIR HYDROCHLORIDE
     Indication: ANTIVIRAL PROPHYLAXIS
     Dates: start: 2018
  19. ALGINATE SODIUM [Concomitant]
     Indication: GASTROOESOPHAGEAL REFLUX DISEASE
     Dates: start: 2018
  20. SMECTA [Concomitant]
     Active Substance: MONTMORILLONITE
     Indication: DIARRHOEA
     Dates: start: 201806, end: 201807
  21. VENCLYXTO [Suspect]
     Active Substance: VENETOCLAX
     Route: 048
     Dates: start: 201809, end: 201809
  22. VENCLYXTO [Suspect]
     Active Substance: VENETOCLAX
     Route: 048
     Dates: start: 201809
  23. PANTOPRAZOLE [Concomitant]
     Active Substance: PANTOPRAZOLE
     Indication: GASTROOESOPHAGEAL REFLUX DISEASE
     Dates: start: 20180419
  24. AMIODARONE [Concomitant]
     Active Substance: AMIODARONE
     Indication: ARRHYTHMIA
     Dates: start: 2018, end: 20180730
  25. CACIT [Concomitant]
     Indication: CALCIUM DEFICIENCY
     Dates: start: 2018
  26. OROZAMUDOL [Concomitant]
     Active Substance: TRAMADOL
     Indication: PAIN
     Dates: start: 20180620
  27. NEBILOX [Concomitant]
     Active Substance: NEBIVOLOL HYDROCHLORIDE
     Indication: ARRHYTHMIA
     Dates: start: 2018, end: 2018
  28. VENCLYXTO [Suspect]
     Active Substance: VENETOCLAX
     Route: 048
     Dates: start: 20180605, end: 20180611
  29. VENCLYXTO [Suspect]
     Active Substance: VENETOCLAX
     Route: 048
     Dates: start: 20180619, end: 20180625
  30. VENCLYXTO [Suspect]
     Active Substance: VENETOCLAX
     Route: 048
     Dates: start: 20180626, end: 20180702
  31. FOLIC ACID. [Concomitant]
     Active Substance: FOLIC ACID
     Indication: HYPOVITAMINOSIS
     Dates: start: 20180419
  32. VALACICLOVIR [Concomitant]
     Active Substance: VALACYCLOVIR HYDROCHLORIDE
     Indication: ALLERGY PROPHYLAXIS
     Dates: start: 20180829
  33. TRAMADOL. [Concomitant]
     Active Substance: TRAMADOL
     Indication: PAIN
     Dates: start: 2018
  34. LOPERAMIDE [Concomitant]
     Active Substance: LOPERAMIDE
     Indication: DIARRHOEA
     Dates: start: 202003
  35. COLECALCIFEROL [Concomitant]
     Active Substance: CHOLECALCIFEROL
     Indication: CALCIUM DEFICIENCY
     Dates: start: 20180419
  36. DIGOXINE [Concomitant]
     Active Substance: DIGOXIN
     Indication: HYPERTENSION
     Dates: start: 20180419
  37. ZOPICLONE [Concomitant]
     Active Substance: ZOPICLONE
     Indication: INSOMNIA
     Dates: start: 20180419
  38. CIFLOX [Concomitant]
     Active Substance: CIPROFLOXACIN
     Indication: PRODUCT USED FOR UNKNOWN INDICATION
  39. INNOHEP [Concomitant]
     Active Substance: TINZAPARIN SODIUM
     Indication: THROMBOSIS PROPHYLAXIS
  40. FASTURTEC [Concomitant]
     Active Substance: RASBURICASE
     Indication: PROPHYLAXIS
     Dates: start: 20190604
  41. VENCLYXTO [Suspect]
     Active Substance: VENETOCLAX
     Dosage: DOSE DECREASED
     Route: 048
     Dates: start: 20180817, end: 201808
  42. TRIMETHOPRIME [Concomitant]
     Active Substance: TRIMETHOPRIM
     Indication: INFECTION
     Dates: start: 20180419
  43. FUROSEMIDE. [Concomitant]
     Active Substance: FUROSEMIDE
     Indication: HYPERTENSION
     Dates: start: 20180419
  44. VENCLYXTO [Suspect]
     Active Substance: VENETOCLAX
     Indication: CHRONIC LYMPHOCYTIC LEUKAEMIA
     Route: 048
     Dates: start: 20180525, end: 20180527
  45. VENCLYXTO [Suspect]
     Active Substance: VENETOCLAX
     Route: 048
     Dates: start: 20180817
  46. BISOPROLOL [Concomitant]
     Active Substance: BISOPROLOL
     Indication: HYPERTENSION
     Dates: start: 20180419
  47. AUGMENTIN [Concomitant]
     Active Substance: AMOXICILLIN\CLAVULANATE POTASSIUM
     Indication: PRODUCT USED FOR UNKNOWN INDICATION

REACTIONS (60)
  - Neutropenia [Recovered/Resolved with Sequelae]
  - Renal failure [Recovered/Resolved with Sequelae]
  - Leukocytosis [Recovered/Resolved]
  - Hyperuricaemia [Recovered/Resolved]
  - Hypocalcaemia [Recovered/Resolved]
  - Rash vesicular [Not Recovered/Not Resolved]
  - Haemoptysis [Not Recovered/Not Resolved]
  - Hyperuricaemia [Recovered/Resolved]
  - Hyperkalaemia [Recovered/Resolved]
  - Hypocalcaemia [Recovered/Resolved]
  - Hyperkalaemia [Recovered/Resolved]
  - Hyperphosphataemia [Recovered/Resolved]
  - Diarrhoea [Not Recovered/Not Resolved]
  - Neutropenia [Not Recovered/Not Resolved]
  - Palpitations [Recovered/Resolved with Sequelae]
  - Oedema peripheral [Recovered/Resolved with Sequelae]
  - Hyperuricaemia [Recovered/Resolved]
  - Blood potassium increased [Recovered/Resolved]
  - Hyperuricaemia [Recovered/Resolved]
  - Hyperuricaemia [Recovered/Resolved]
  - Hyperkalaemia [Not Recovered/Not Resolved]
  - Haemoptysis [Recovered/Resolved]
  - Lymphopenia [Not Recovered/Not Resolved]
  - Hyperkalaemia [Recovered/Resolved]
  - Neutropenia [Recovered/Resolved]
  - Hepatosplenomegaly [Recovered/Resolved]
  - Hypocalcaemia [Recovered/Resolved]
  - Hyperuricaemia [Recovered/Resolved]
  - Hyperuricaemia [Recovered/Resolved]
  - Hyperuricaemia [Recovered/Resolved]
  - Neutropenia [Recovered/Resolved with Sequelae]
  - Neutropenia [Recovered/Resolved]
  - Hyperkalaemia [Recovered/Resolved]
  - Arrhythmia supraventricular [Unknown]
  - Weight increased [Recovered/Resolved]
  - Cardiac failure [Recovering/Resolving]
  - Tumour lysis syndrome [Recovering/Resolving]
  - Anaemia [Recovered/Resolved]
  - Neutropenia [Not Recovered/Not Resolved]
  - Diarrhoea [Recovered/Resolved]
  - Thrombocytopenia [Not Recovered/Not Resolved]
  - Dyspnoea [Not Recovered/Not Resolved]
  - Neutropenia [Recovered/Resolved with Sequelae]
  - Anxiety [Recovered/Resolved]
  - Haemoptysis [Recovered/Resolved]
  - Rash maculo-papular [Not Recovered/Not Resolved]
  - Blood creatinine increased [Recovered/Resolved]
  - Lung disorder [Recovered/Resolved]
  - Respiratory failure [Not Recovered/Not Resolved]
  - Lymphadenopathy [Recovered/Resolved]
  - Ear haemorrhage [Recovering/Resolving]
  - Diarrhoea [Recovered/Resolved]
  - Hyperuricaemia [Not Recovered/Not Resolved]
  - Hyperkalaemia [Not Recovered/Not Resolved]
  - Hypogammaglobulinaemia [Not Recovered/Not Resolved]
  - Hypocalcaemia [Recovered/Resolved]
  - Hyperkalaemia [Recovered/Resolved]
  - Neutropenia [Recovered/Resolved]
  - Skin lesion [Not Recovered/Not Resolved]
  - Dyspnoea [Not Recovered/Not Resolved]

NARRATIVE: CASE EVENT DATE: 20180525
